FAERS Safety Report 10531294 (Version 7)
Quarter: 2016Q2

REPORT INFORMATION
  Report Type: Report from Study
  Country: JP (occurrence: JP)
  Receive Date: 20141021
  Receipt Date: 20160504
  Transmission Date: 20160815
  Serious: Yes (Other)
  Sender: FDA-Public Use
  Company Number: PHHY2013JP140832

PATIENT
  Age: 12 Year
  Sex: Female
  Weight: 38 kg

DRUGS (15)
  1. ACZ885 [Suspect]
     Active Substance: CANAKINUMAB
     Dosage: 150 MG, QD
     Route: 058
     Dates: start: 20140306
  2. ACZ885 [Suspect]
     Active Substance: CANAKINUMAB
     Dosage: 150 MG, QD
     Route: 058
     Dates: start: 20120628
  3. ACZ885 [Suspect]
     Active Substance: CANAKINUMAB
     Dosage: 150 MG, QD
     Route: 058
     Dates: start: 20121210
  4. ACZ885 [Suspect]
     Active Substance: CANAKINUMAB
     Dosage: 6 MG/KG, UNK
     Route: 058
     Dates: start: 201509
  5. ACZ885 [Suspect]
     Active Substance: CANAKINUMAB
     Dosage: 150 MG, QD
     Route: 058
     Dates: start: 20121015
  6. ACZ885 [Suspect]
     Active Substance: CANAKINUMAB
     Dosage: 150 MG, QD
     Route: 058
     Dates: start: 20130204
  7. ACZ885 [Suspect]
     Active Substance: CANAKINUMAB
     Dosage: 150 MG, QD
     Route: 058
     Dates: start: 20130722
  8. ACZ885 [Suspect]
     Active Substance: CANAKINUMAB
     Dosage: 150 MG, QD
     Route: 058
     Dates: start: 20130401
  9. ACZ885 [Suspect]
     Active Substance: CANAKINUMAB
     Dosage: 150 MG, QD
     Route: 058
     Dates: start: 20131114
  10. ACZ885 [Suspect]
     Active Substance: CANAKINUMAB
     Dosage: 150 MG, QD
     Route: 058
     Dates: start: 20120820
  11. ACZ885 [Suspect]
     Active Substance: CANAKINUMAB
     Dosage: 150 MG, QD
     Route: 058
     Dates: start: 20130917
  12. ACZ885 [Suspect]
     Active Substance: CANAKINUMAB
     Dosage: 150 MG, QD
     Route: 058
     Dates: start: 20140109
  13. ACZ885 [Suspect]
     Active Substance: CANAKINUMAB
     Indication: MUCKLE-WELLS SYNDROME
     Dosage: 150 MG, QD
     Route: 058
     Dates: start: 20120501
  14. ACZ885 [Suspect]
     Active Substance: CANAKINUMAB
     Dosage: 150 MG, QD
     Route: 058
     Dates: start: 20130527
  15. ACZ885 [Suspect]
     Active Substance: CANAKINUMAB
     Dosage: UNK

REACTIONS (8)
  - Haemoglobin increased [Unknown]
  - Osteochondrosis [Unknown]
  - Anaemia [Not Recovered/Not Resolved]
  - Deafness transitory [Recovering/Resolving]
  - Hypoacusis [Not Recovered/Not Resolved]
  - Occult blood positive [Recovered/Resolved]
  - Gastrointestinal haemorrhage [Recovered/Resolved]
  - Eosinophil count increased [Unknown]

NARRATIVE: CASE EVENT DATE: 20121225
